FAERS Safety Report 10259125 (Version 2)
Quarter: 2016Q3

REPORT INFORMATION
  Report Type: Spontaneous
  Country: US (occurrence: US)
  Receive Date: 20140625
  Receipt Date: 20160720
  Transmission Date: 20161109
  Serious: No
  Sender: FDA-Public Use
  Company Number: US-ASTELLAS-2013US012059

PATIENT
  Sex: Female

DRUGS (1)
  1. VESICARE [Suspect]
     Active Substance: SOLIFENACIN SUCCINATE
     Indication: BLADDER OPERATION
     Route: 048

REACTIONS (3)
  - Dry mouth [Recovering/Resolving]
  - Thirst [Recovering/Resolving]
  - Constipation [Recovering/Resolving]
